FAERS Safety Report 19474201 (Version 2)
Quarter: 2021Q3

REPORT INFORMATION
  Report Type: Report from Study
  Country: None (occurrence: IL)
  Receive Date: 20210630
  Receipt Date: 20210728
  Transmission Date: 20211014
  Serious: Yes (Other)
  Sender: FDA-Public Use
  Company Number: IL-ABBVIE-21K-082-3967858-00

PATIENT
  Sex: Female

DRUGS (1)
  1. HUMIRA [Suspect]
     Active Substance: ADALIMUMAB
     Indication: CROHN^S DISEASE
     Route: 058
     Dates: start: 20210415, end: 20210622

REACTIONS (5)
  - Lymphadenopathy [Not Recovered/Not Resolved]
  - Depressed mood [Not Recovered/Not Resolved]
  - Epistaxis [Unknown]
  - Crying [Not Recovered/Not Resolved]
  - Haemoptysis [Not Recovered/Not Resolved]
